FAERS Safety Report 8041194-9 (Version None)
Quarter: 2012Q1

REPORT INFORMATION
  Report Type: 
  Country: None (occurrence: None)
  Receive Date: 20120112
  Receipt Date: 20120109
  Transmission Date: 20120608
  Serious: Yes (Hospitalization, Other)
  Sender: FDA-Public Use
  Company Number: US-JNJFOC-20110712094

PATIENT
  Sex: Female

DRUGS (1)
  1. LEVAQUIN [Suspect]
     Indication: BRONCHITIS
     Route: 048
     Dates: start: 20100921, end: 20100929

REACTIONS (4)
  - TENOSYNOVITIS [None]
  - TENDON RUPTURE [None]
  - PLANTAR FASCIITIS [None]
  - DEPRESSION [None]
